FAERS Safety Report 6442939-1 (Version None)
Quarter: 2009Q4

REPORT INFORMATION
  Report Type: 
  Country: None (occurrence: None)
  Receive Date: 20091117
  Receipt Date: 20091105
  Transmission Date: 20100525
  Serious: Yes (Disabling, Other)
  Sender: FDA-Public Use
  Company Number: FR-AMGEN-US335613

PATIENT
  Sex: Female

DRUGS (4)
  1. ENBREL [Suspect]
     Indication: RHEUMATOID ARTHRITIS
     Route: 058
     Dates: start: 20030101, end: 20090102
  2. CORTANCYL [Concomitant]
     Dosage: 10 MG TOTAL DAILY
     Route: 048
  3. DI-ANTALVIC [Concomitant]
     Dosage: UNKNOWN
     Route: 065
  4. HUMIRA [Concomitant]
     Route: 065

REACTIONS (2)
  - BRONCHIAL HYPERREACTIVITY [None]
  - PULMONARY FIBROSIS [None]
